FAERS Safety Report 25772673 (Version 1)
Quarter: 2025Q3

REPORT INFORMATION
  Report Type: Spontaneous
  Country: US (occurrence: US)
  Receive Date: 20250908
  Receipt Date: 20250908
  Transmission Date: 20251021
  Serious: Yes (Other)
  Sender: CIPLA
  Company Number: US-CIPLA LTD.-2025US11101

PATIENT

DRUGS (2)
  1. RANOLAZINE [Suspect]
     Active Substance: RANOLAZINE
     Indication: Product used for unknown indication
     Dosage: 500 MILLIGRAM, BID
     Route: 065
  2. RANOLAZINE [Suspect]
     Active Substance: RANOLAZINE
     Dosage: 1000 MILLIGRAM, BID
     Route: 065

REACTIONS (1)
  - Myopathy toxic [Recovering/Resolving]
